FAERS Safety Report 10731550 (Version 2)
Quarter: 2015Q2

REPORT INFORMATION
  Report Type: Spontaneous
  Country: US (occurrence: US)
  Receive Date: 20150123
  Receipt Date: 20150602
  Transmission Date: 20150821
  Serious: Yes (Other)
  Sender: FDA-Public Use
  Company Number: US-009507513-1501USA006870

PATIENT
  Age: 42 Year
  Sex: Female
  Weight: 76.19 kg

DRUGS (17)
  1. GRASTEK [Suspect]
     Active Substance: PHLEUM PRATENSE POLLEN
     Indication: SEASONAL ALLERGY
     Dosage: 2800 BAU/ ONE TIME
     Route: 060
     Dates: start: 20141209, end: 20141209
  2. SINGULAIR [Concomitant]
     Active Substance: MONTELUKAST SODIUM
     Dosage: 1 AT BEDTIME
     Route: 048
  3. HYOSCYAMINE [Concomitant]
     Active Substance: HYOSCYAMINE
     Indication: IRRITABLE BOWEL SYNDROME
     Dosage: Q4 HOURS PM
     Route: 048
  4. ALLEGRA ALLERGY [Concomitant]
     Active Substance: FEXOFENADINE HYDROCHLORIDE
     Dosage: 1 PO DAILY AS NEEDED TWICE DAILY AS NEEDED
     Route: 048
  5. GRASTEK [Suspect]
     Active Substance: PHLEUM PRATENSE POLLEN
     Indication: MULTIPLE ALLERGIES
     Dosage: 2800 BAU/ ONE TIME
     Route: 048
     Dates: start: 20141202, end: 20141202
  6. PULMICORT FLEXHALER [Concomitant]
     Active Substance: BUDESONIDE
     Dosage: 2 INHALATION TWICE DAILY, RINSE MOUTH AFTER USING
     Route: 055
  7. MEDROL [Concomitant]
     Active Substance: METHYLPREDNISOLONE
     Dosage: 1 PO IN AM WITH FOOD FOR 3 DAYS PER YELLOW ZONE ASTHMA ACTION PLAN-MAKE APPOINTMENT
  8. FLUTICASONE PROPIONATE. [Concomitant]
     Active Substance: FLUTICASONE PROPIONATE
     Dosage: 2 SPRAYS ONCE DAILY
  9. METHYLPREDNISOLONE SODIUM SUCCINATE. [Concomitant]
     Active Substance: METHYLPREDNISOLONE SODIUM SUCCINATE
     Dosage: AS DIRECTED
  10. EPIPEN JR [Concomitant]
     Active Substance: EPINEPHRINE
     Indication: ANAPHYLACTIC REACTION
     Dosage: INJECT IN LATERAL THIGH PRN
  11. VENTOLIN HFA [Concomitant]
     Active Substance: ALBUTEROL SULFATE
     Dosage: 2 PUFFS EVERY 4 HOURS WITH SPACER AS NEEDED
  12. PREDNISONE. [Concomitant]
     Active Substance: PREDNISONE
     Dosage: 2 TABS PO IN AM WITH FOOD FOR 3 DAYS PER YELLOW ZONE OF ASTHMA ACTION PLAN - MAKE APPOINTMENT
     Route: 048
  13. OMEPRAZOLE. [Concomitant]
     Active Substance: OMEPRAZOLE
     Dosage: ONE TABLET BID
  14. XOPENEX [Concomitant]
     Active Substance: LEVALBUTEROL HYDROCHLORIDE
     Dosage: 1 VIAL IN NEBULIZER EVERY 6 HOURS AS NEEDED
  15. ALAWAY [Concomitant]
     Active Substance: KETOTIFEN FUMARATE
     Dosage: 1 DROP PER EYE TWICE DAILY AS NEEDED
  16. FORADIL [Concomitant]
     Active Substance: FORMOTEROL FUMARATE
     Dosage: ONE DOSE IN MORNING AND EVENING EVERY DAY
  17. ESTROGEN NOS [Concomitant]
     Active Substance: ESTROGENS
     Dosage: 2 MG PO DAILY AT BEDTIME
     Route: 048

REACTIONS (3)
  - Incorrect route of drug administration [Unknown]
  - Off label use [Unknown]
  - Anaphylactic reaction [Recovered/Resolved]

NARRATIVE: CASE EVENT DATE: 20141202
